FAERS Safety Report 5138504-9 (Version None)
Quarter: 2006Q4

REPORT INFORMATION
  Report Type: 
  Country: None (occurrence: None)
  Receive Date: 20061030
  Receipt Date: 20060306
  Transmission Date: 20070319
  Serious: No
  Sender: FDA-Public Use
  Company Number: US-GLAXOSMITHKLINE-A0596277A

PATIENT
  Age: 55 Year
  Sex: Male

DRUGS (10)
  1. ADVAIR HFA [Suspect]
     Dosage: 1PUFF UNKNOWN
     Route: 055
     Dates: start: 20060301
  2. LEVOTHYROXIN [Concomitant]
  3. PRANDIN [Concomitant]
  4. ASPIRIN [Concomitant]
  5. UNKNOWN MEDICATION [Concomitant]
  6. PLAVIX [Concomitant]
  7. LISINOPRIL [Concomitant]
  8. PROTONIX [Concomitant]
  9. LIPITOR [Concomitant]
  10. RENAGEL [Concomitant]

REACTIONS (3)
  - DRUG INEFFECTIVE [None]
  - DYSPNOEA [None]
  - PHARMACEUTICAL PRODUCT COMPLAINT [None]
